FAERS Safety Report 14942970 (Version 1)
Quarter: 2018Q2

REPORT INFORMATION
  Report Type: Spontaneous
  Country: US (occurrence: US)
  Receive Date: 20180528
  Receipt Date: 20180528
  Transmission Date: 20180711
  Serious: Yes (Other)
  Sender: FDA-Public Use
  Company Number: US-JNJFOC-20180519741

PATIENT
  Sex: Male

DRUGS (1)
  1. SIMPLY SLEEP [Suspect]
     Active Substance: DIPHENHYDRAMINE HYDROCHLORIDE
     Indication: SLEEP DISORDER THERAPY
     Dosage: 6-8 CAPLETS
     Route: 065
     Dates: start: 20180513

REACTIONS (3)
  - Drug dependence [Not Recovered/Not Resolved]
  - Intentional product misuse [None]
  - Product use issue [Unknown]

NARRATIVE: CASE EVENT DATE: 20180513
